FAERS Safety Report 9167057 (Version 2)
Quarter: 2013Q1

REPORT INFORMATION
  Report Type: Spontaneous
  Country: US (occurrence: US)
  Receive Date: 20130318
  Receipt Date: 20130318
  Transmission Date: 20140127
  Serious: Yes (Other)
  Sender: FDA-Public Use
  Company Number: US-JNJCP-30000151954

PATIENT
  Sex: Female

DRUGS (11)
  1. NEUTROGENA HEALTHY SKIN FACE SUNSCREEN SPF 15 [Suspect]
     Indication: DRY SKIN PROPHYLAXIS
     Route: 061
  2. NO DRUG NAME [Concomitant]
  3. NO DRUG NAME [Concomitant]
  4. NO DRUG NAME [Concomitant]
  5. NO DRUG NAME [Concomitant]
  6. NO DRUG NAME [Concomitant]
  7. NO DRUG NAME [Concomitant]
  8. NO DRUG NAME [Concomitant]
  9. NO DRUG NAME [Concomitant]
  10. ENTERIC COATED ASPRIN [Concomitant]
     Indication: MYALGIA
     Dosage: ONE TABLET
  11. HORMONE REPLACEMENT [Concomitant]
     Indication: PRODUCT USED FOR UNKNOWN INDICATION
     Dosage: FOR YEARS

REACTIONS (7)
  - Application site swelling [Recovering/Resolving]
  - Dyspnoea [Unknown]
  - Application site discolouration [Recovering/Resolving]
  - Application site reaction [Not Recovered/Not Resolved]
  - Asthenia [Not Recovered/Not Resolved]
  - Dizziness [Not Recovered/Not Resolved]
  - Nausea [Unknown]
